FAERS Safety Report 5011980-8 (Version None)
Quarter: 2006Q2

REPORT INFORMATION
  Report Type: 
  Country: None (occurrence: None)
  Receive Date: 20060524
  Receipt Date: 20060517
  Transmission Date: 20061013
  Serious: Yes (Hospitalization)
  Sender: FDA-Public Use
  Company Number: 2005-BP-21856RO

PATIENT
  Age: 74 Year
  Sex: Female

DRUGS (4)
  1. METHOTREXATE [Suspect]
     Dosage: 10 MG PER WEEK, SC
     Route: 058
  2. BENDROFLUAZIDE (BENDROMETHIAZIDE) [Concomitant]
  3. LISINOPRIL [Concomitant]
  4. PREDNISOLONE [Concomitant]

REACTIONS (2)
  - LETHARGY [None]
  - PANCYTOPENIA [None]
